FAERS Safety Report 5972961-0 (Version None)
Quarter: 2008Q4

REPORT INFORMATION
  Report Type: 
  Country: None (occurrence: None)
  Receive Date: 20081201
  Receipt Date: 20081121
  Transmission Date: 20090506
  Serious: Yes (Other)
  Sender: FDA-Public Use
  Company Number: PHHY2008FR25656

PATIENT
  Sex: Male
  Weight: 60 kg

DRUGS (9)
  1. EXELON [Suspect]
     Indication: DEMENTIA ALZHEIMER'S TYPE
     Dosage: 4.6 MG, QD
     Route: 062
     Dates: start: 20080902
  2. EXELON [Suspect]
     Dosage: 9.5 MG, QD
     Route: 062
     Dates: start: 20080926, end: 20081014
  3. FLUDEX [Concomitant]
  4. COVERSYL [Concomitant]
  5. AMLOD [Concomitant]
     Dosage: UNK
     Dates: start: 20041101
  6. PLAVIX [Concomitant]
     Dosage: UNK
     Dates: start: 20041101
  7. TAHOR [Concomitant]
     Dosage: 40 MG, UNK
     Dates: start: 20041101
  8. METFORMINE ^MERCK^ [Concomitant]
     Dosage: UNK
     Dates: start: 20080501
  9. DIAMICRON [Concomitant]
     Dosage: UNK
     Dates: start: 20080501

REACTIONS (3)
  - CONDITION AGGRAVATED [None]
  - EXTRAPYRAMIDAL DISORDER [None]
  - GAIT DISTURBANCE [None]
